FAERS Safety Report 10662905 (Version 2)
Quarter: 2015Q1

REPORT INFORMATION
  Report Type: Report from Study
  Country: US (occurrence: US)
  Receive Date: 20141218
  Receipt Date: 20150129
  Transmission Date: 20150720
  Serious: No
  Sender: FDA-Public Use
  Company Number: US-ABBVIE-14K-163-1322072-00

PATIENT
  Age: 57 Year
  Sex: Male

DRUGS (1)
  1. HUMIRA [Suspect]
     Active Substance: ADALIMUMAB
     Indication: CROHN^S DISEASE
     Route: 058
     Dates: start: 20140507, end: 20141119

REACTIONS (2)
  - Aspartate aminotransferase increased [Recovered/Resolved]
  - Alanine aminotransferase increased [Not Recovered/Not Resolved]

NARRATIVE: CASE EVENT DATE: 201410
